FAERS Safety Report 6829276-8 (Version None)
Quarter: 2010Q3

REPORT INFORMATION
  Report Type: 
  Country: None (occurrence: None)
  Receive Date: 20100709
  Receipt Date: 20070306
  Transmission Date: 20110219
  Serious: No
  Sender: FDA-Public Use
  Company Number: US-PFIZER INC-2007017778

PATIENT
  Sex: Female
  Weight: 54.43 kg

DRUGS (3)
  1. CHANTIX [Suspect]
     Indication: SMOKING CESSATION THERAPY
     Dates: start: 20070302, end: 20070305
  2. LISINOPRIL [Concomitant]
  3. DIGITEK [Concomitant]

REACTIONS (6)
  - FATIGUE [None]
  - HEADACHE [None]
  - IRRITABILITY [None]
  - LETHARGY [None]
  - SEDATION [None]
  - SOMNOLENCE [None]
